FAERS Safety Report 5348035-9 (Version None)
Quarter: 2007Q2

REPORT INFORMATION
  Report Type: 
  Country: None (occurrence: None)
  Receive Date: 20070508
  Receipt Date: 20070212
  Transmission Date: 20071010
  Serious: Yes (Other)
  Sender: FDA-Public Use
  Company Number: 231125K07USA

PATIENT
  Age: 43 Year
  Sex: Female

DRUGS (4)
  1. REBIF [Suspect]
     Indication: MULTIPLE SCLEROSIS
     Dosage: 44 MCG, 3 IN 1 WEEKS, SUBCUTANEOUS
     Route: 058
     Dates: start: 20061024, end: 20070209
  2. ADVIL LIQUI-GELS [Concomitant]
  3. MULTI-VITAMINS [Concomitant]
  4. MEDICINE (ALL OTHER THERAPEUTIC PRODUCTS) [Concomitant]

REACTIONS (4)
  - ANOREXIA [None]
  - HEPATIC ENZYME INCREASED [None]
  - STOMACH DISCOMFORT [None]
  - VOMITING [None]
